FAERS Safety Report 17803192 (Version 1)
Quarter: 2020Q2

REPORT INFORMATION
  Report Type: Spontaneous
  Country: US (occurrence: US)
  Receive Date: 20200519
  Receipt Date: 20200519
  Transmission Date: 20200714
  Serious: Yes (Other)
  Sender: FDA-Public Use
  Company Number: US-ELI_LILLY_AND_COMPANY-US202005002614

PATIENT
  Sex: Female
  Weight: 51.7 kg

DRUGS (5)
  1. CYMBALTA [Suspect]
     Active Substance: DULOXETINE HYDROCHLORIDE
     Dosage: UNK, UNKNOWN
     Route: 065
     Dates: end: 202001
  2. LISINOPRIL. [Suspect]
     Active Substance: LISINOPRIL
     Indication: HYPERTENSION
     Dosage: 5 MG, EACH MORNING
     Route: 048
     Dates: start: 201904
  3. LISINOPRIL. [Suspect]
     Active Substance: LISINOPRIL
     Indication: DEPRESSION
  4. LISINOPRIL. [Suspect]
     Active Substance: LISINOPRIL
     Indication: ANXIETY
     Dosage: 5 MG, EACH MORNING
     Route: 048
     Dates: end: 202001
  5. CYMBALTA [Suspect]
     Active Substance: DULOXETINE HYDROCHLORIDE
     Indication: PRODUCT USED FOR UNKNOWN INDICATION
     Dosage: UNK, UNKNOWN
     Route: 065

REACTIONS (4)
  - Erythema nodosum [Recovering/Resolving]
  - Paraesthesia [Unknown]
  - Crying [Unknown]
  - Gait inability [Unknown]
